FAERS Safety Report 21883672 (Version 3)
Quarter: 2023Q2

REPORT INFORMATION
  Report Type: Spontaneous
  Country: CA (occurrence: CA)
  Receive Date: 20230119
  Receipt Date: 20230606
  Transmission Date: 20230721
  Serious: Yes (Hospitalization, Other)
  Sender: FDA-Public Use
  Company Number: CA-CELLTRION INC.-2023CA000817

PATIENT

DRUGS (3)
  1. INFLIXIMAB [Suspect]
     Active Substance: INFLIXIMAB
     Indication: Rheumatoid arthritis
     Dosage: 120 MILLIGRAM PER MILLILITRE, Q2WEEKS
     Route: 058
     Dates: start: 20220706
  2. INFLIXIMAB [Suspect]
     Active Substance: INFLIXIMAB
     Dosage: UNK
     Dates: start: 20230119
  3. SULPHATRIM [Concomitant]
     Indication: Infection
     Dosage: SULPHATRIM DS 800MG MON - WED -FRI

REACTIONS (3)
  - Shoulder arthroplasty [Recovered/Resolved]
  - Knee arthroplasty [Unknown]
  - Intentional dose omission [Unknown]

NARRATIVE: CASE EVENT DATE: 20221211
